FAERS Safety Report 6953864-1 (Version None)
Quarter: 2010Q3

REPORT INFORMATION
  Report Type: 
  Country: None (occurrence: None)
  Receive Date: 20100829
  Receipt Date: 20100624
  Transmission Date: 20110219
  Serious: No
  Sender: FDA-Public Use
  Company Number: US-ABBOTT-10P-163-0654193-00

PATIENT
  Sex: Female
  Weight: 51.756 kg

DRUGS (3)
  1. NIASPAN [Suspect]
     Indication: HIGH DENSITY LIPOPROTEIN INCREASED
     Dates: start: 20100314, end: 20100501
  2. NIASPAN [Suspect]
     Dates: start: 20100501, end: 20100601
  3. NIASPAN [Suspect]
     Dates: start: 20100618

REACTIONS (2)
  - ABDOMINAL DISCOMFORT [None]
  - DIZZINESS [None]
